FAERS Safety Report 13105839 (Version 1)
Quarter: 2017Q1

REPORT INFORMATION
  Report Type: Spontaneous
  Country: US (occurrence: US)
  Receive Date: 20170111
  Receipt Date: 20170111
  Transmission Date: 20170428
  Serious: Yes (Other)
  Sender: FDA-Public Use
  Company Number: US-GILEAD-2017-0252279

PATIENT
  Age: 56 Year
  Sex: Female

DRUGS (19)
  1. PREDNISONE. [Concomitant]
     Active Substance: PREDNISONE
  2. METHYLPREDNISOLONE. [Concomitant]
     Active Substance: METHYLPREDNISOLONE
  3. POTASSIUM CHLORIDE. [Concomitant]
     Active Substance: POTASSIUM CHLORIDE
  4. TRIMETHOPRIM SULFAMETHOXAZOLE [Concomitant]
     Active Substance: SULFAMETHOXAZOLE\TRIMETHOPRIM
  5. COLCHICINE. [Concomitant]
     Active Substance: COLCHICINE
  6. OMEPRAZOLE. [Concomitant]
     Active Substance: OMEPRAZOLE
  7. AZATHIOPRINE. [Concomitant]
     Active Substance: AZATHIOPRINE
  8. RIBAVIRIN. [Suspect]
     Active Substance: RIBAVIRIN
     Indication: HEPATITIS C
     Dosage: 200 MG, BID
     Route: 048
  9. CYCLOSPORINE. [Concomitant]
     Active Substance: CYCLOSPORINE
  10. ERYTHROPOIETIN [Concomitant]
     Active Substance: ERYTHROPOIETIN
  11. LABETALOL [Concomitant]
     Active Substance: LABETALOL\LABETALOL HYDROCHLORIDE
  12. BUMETANIDE. [Concomitant]
     Active Substance: BUMETANIDE
  13. LACTULOSE. [Concomitant]
     Active Substance: LACTULOSE
  14. MAGNESIUM OXIDE. [Concomitant]
     Active Substance: MAGNESIUM OXIDE
  15. SOFOSBUVIR [Suspect]
     Active Substance: SOFOSBUVIR
     Indication: HEPATITIS C
     Dosage: 400 MG, QD
     Route: 048
  16. MYCOPHENOLATE MOFETIL              /01275104/ [Concomitant]
     Active Substance: MYCOPHENOLATE MOFETIL
  17. ALLOPURINOL. [Concomitant]
     Active Substance: ALLOPURINOL
  18. METOLAZONE. [Concomitant]
     Active Substance: METOLAZONE
  19. RIFAXIMIN [Concomitant]
     Active Substance: RIFAXIMIN

REACTIONS (3)
  - Hepatitis C [Recovered/Resolved]
  - Glomerulonephritis [Recovered/Resolved]
  - Drug ineffective [Recovered/Resolved]
